FAERS Safety Report 17686218 (Version 5)
Quarter: 2021Q3

REPORT INFORMATION
  Report Type: Spontaneous
  Country: US (occurrence: US)
  Receive Date: 20200420
  Receipt Date: 20210914
  Transmission Date: 20211014
  Serious: Yes (Other)
  Sender: FDA-Public Use
  Company Number: US-PURDUE-USA-2020-0151787

PATIENT
  Sex: Female
  Weight: 140 kg

DRUGS (22)
  1. OXYCONTIN [Suspect]
     Active Substance: OXYCODONE HYDROCHLORIDE
     Indication: PAIN
  2. OXYCONTIN [Suspect]
     Active Substance: OXYCODONE HYDROCHLORIDE
     Indication: HYSTERECTOMY
     Dosage: 40 MG, UNKNOWN
     Route: 048
     Dates: start: 200806, end: 201411
  3. OXYCODONE HYDROCHLORIDE (SIMILAR TO NDA 22?272) [Suspect]
     Active Substance: OXYCODONE HYDROCHLORIDE
     Indication: PAIN
     Dosage: 15 MG, 6 TIMES A DAY
     Route: 048
     Dates: start: 2010, end: 2013
  4. OXYCONTIN [Suspect]
     Active Substance: OXYCODONE HYDROCHLORIDE
     Indication: LEG AMPUTATION
     Dosage: 40 MG, UNKNOWN
     Route: 048
     Dates: start: 2005
  5. OXYCONTIN [Suspect]
     Active Substance: OXYCODONE HYDROCHLORIDE
     Indication: KNEE ARTHROPLASTY
  6. COCAINE [Suspect]
     Active Substance: COCAINE
     Indication: PRODUCT USED FOR UNKNOWN INDICATION
     Dosage: UNKNOWN
     Route: 065
  7. PERCOCET                           /00446701/ [Suspect]
     Active Substance: ACETAMINOPHEN\OXYCODONE HYDROCHLORIDE\OXYCODONE TEREPHTHALATE
     Indication: LEG AMPUTATION
     Dosage: 10 MG, UNKNWON
     Route: 048
     Dates: start: 2015
  8. VENTOLIN HFA [Concomitant]
     Active Substance: ALBUTEROL SULFATE
     Indication: CHRONIC OBSTRUCTIVE PULMONARY DISEASE
     Dosage: UNKNOWN, PRN
     Route: 065
     Dates: start: 2013
  9. XYZAL [Concomitant]
     Active Substance: LEVOCETIRIZINE DIHYDROCHLORIDE
     Indication: HYPERSENSITIVITY
     Dosage: 5 MG, UNKNOWN
     Route: 065
     Dates: start: 2018
  10. OXYCODONE HYDROCHLORIDE (SIMILAR TO NDA 22?272) [Suspect]
     Active Substance: OXYCODONE HYDROCHLORIDE
     Indication: HYSTERECTOMY
     Dosage: 15 MG, UNKNOWN
     Route: 048
     Dates: start: 2005, end: 2014
  11. GABAPENTIN. [Suspect]
     Active Substance: GABAPENTIN
     Indication: HYSTERECTOMY
     Dosage: UNKNOWN
     Route: 065
  12. PHENERGAN [Concomitant]
     Active Substance: PROMETHAZINE HYDROCHLORIDE
     Indication: NAUSEA
     Dosage: 25 MG, PRN
     Route: 065
     Dates: start: 2020
  13. OXYCODONE HYDROCHLORIDE (SIMILAR TO NDA 22?272) [Suspect]
     Active Substance: OXYCODONE HYDROCHLORIDE
     Indication: LEG AMPUTATION
     Dosage: UNKNOWN
     Route: 048
     Dates: start: 2008, end: 201503
  14. DIFLUCAN [Concomitant]
     Active Substance: FLUCONAZOLE
     Indication: URINARY TRACT INFECTION
     Dosage: UNKNOWN, PRN
     Route: 065
     Dates: start: 2018
  15. LYRICA [Suspect]
     Active Substance: PREGABALIN
     Indication: LEG AMPUTATION
     Dosage: 200 MG, TID
     Route: 048
     Dates: start: 2010
  16. ENDOCET [Concomitant]
     Active Substance: ACETAMINOPHEN\OXYCODONE HYDROCHLORIDE
     Indication: PAIN
     Dosage: 10/325 X 14 DAYS
     Route: 065
     Dates: start: 2018
  17. OXYCODONE HYDROCHLORIDE (SIMILAR TO NDA 22?272) [Suspect]
     Active Substance: OXYCODONE HYDROCHLORIDE
     Indication: KNEE ARTHROPLASTY
  18. LYRICA [Suspect]
     Active Substance: PREGABALIN
     Indication: PAIN
     Dosage: 200 MG, TID
     Route: 065
     Dates: start: 2008
  19. PRILOSEC [Concomitant]
     Active Substance: OMEPRAZOLE MAGNESIUM
     Indication: GASTROOESOPHAGEAL REFLUX DISEASE
     Dosage: 20 MG,DAILY
     Route: 065
     Dates: start: 2008
  20. ZOFRAN [Concomitant]
     Active Substance: ONDANSETRON HYDROCHLORIDE
     Indication: GASTROOESOPHAGEAL REFLUX DISEASE
     Dosage: UNKNOWN, PRN
     Route: 065
     Dates: start: 2005
  21. TYLENOL [Concomitant]
     Active Substance: ACETAMINOPHEN
     Indication: PAIN
     Dosage: UNKNOWN, PRN
     Route: 065
     Dates: start: 2008
  22. BENADRYL [Concomitant]
     Active Substance: DIPHENHYDRAMINE HYDROCHLORIDE
     Indication: HYPERSENSITIVITY
     Dosage: UNKNOWN, PRN
     Route: 065
     Dates: start: 2008

REACTIONS (17)
  - Rheumatoid arthritis [Unknown]
  - Gastrooesophageal reflux disease [Unknown]
  - Suicidal ideation [Unknown]
  - Drug withdrawal syndrome [Unknown]
  - Leg amputation [Recovered/Resolved]
  - Depression [Unknown]
  - Hernia repair [Unknown]
  - Anxiety [Unknown]
  - Degenerative bone disease [Unknown]
  - Chronic obstructive pulmonary disease [Unknown]
  - Fibromyalgia [Unknown]
  - Knee arthroplasty [Recovered/Resolved]
  - Post procedural infection [Recovered/Resolved]
  - Drug dependence [Recovered/Resolved]
  - Substance abuse [Unknown]
  - Irritable bowel syndrome [Unknown]
  - Urticaria [Recovered/Resolved]

NARRATIVE: CASE EVENT DATE: 2007
